FAERS Safety Report 6172954-7 (Version None)
Quarter: 2009Q2

REPORT INFORMATION
  Report Type: 
  Country: None (occurrence: None)
  Receive Date: 20090430
  Receipt Date: 20090420
  Transmission Date: 20091009
  Serious: Yes (Hospitalization)
  Sender: FDA-Public Use
  Company Number: NL-TYCO HEALTHCARE/MALLINCKRODT-T200900898

PATIENT

DRUGS (1)
  1. METHADONE [Suspect]
     Dosage: 15 TABLETS OF  5 MG

REACTIONS (7)
  - ACCIDENTAL OVERDOSE [None]
  - CONFUSIONAL STATE [None]
  - DEAFNESS NEUROSENSORY [None]
  - DRUG DIVERSION [None]
  - NAUSEA [None]
  - RESPIRATORY RATE DECREASED [None]
  - TINNITUS [None]
